FAERS Safety Report 9303174 (Version 1)
Quarter: 2013Q2

REPORT INFORMATION
  Report Type: Spontaneous
  Country: US (occurrence: None)
  Receive Date: 20130521
  Receipt Date: 20130521
  Transmission Date: 20140414
  Serious: Yes (Other)
  Sender: FDA-Public Use
  Company Number: None

PATIENT
  Age: 57 Year
  Sex: Female
  Weight: 78.02 kg

DRUGS (1)
  1. XARELTO [Suspect]
     Indication: ATRIAL FIBRILLATION
     Dosage: 1 DAILY
     Dates: start: 20130228, end: 20130317

REACTIONS (5)
  - Contusion [None]
  - Pain in extremity [None]
  - Local swelling [None]
  - Gait disturbance [None]
  - Gait disturbance [None]
